FAERS Safety Report 6546537-0 (Version None)
Quarter: 2010Q1

REPORT INFORMATION
  Report Type: 
  Country: None (occurrence: None)
  Receive Date: 20100122
  Receipt Date: 20100114
  Transmission Date: 20100710
  Serious: Yes (Death)
  Sender: FDA-Public Use
  Company Number: US-AMGEN-US385802

PATIENT
  Sex: Female

DRUGS (2)
  1. NPLATE [Suspect]
     Indication: THROMBOCYTOPENIA
     Route: 058
     Dates: start: 20090805, end: 20090813
  2. PREDNISONE [Concomitant]
     Route: 048

REACTIONS (1)
  - DEATH [None]
